FAERS Safety Report 9282620 (Version 7)
Quarter: 2013Q3

REPORT INFORMATION
  Report Type: Spontaneous
  Country: US (occurrence: US)
  Receive Date: 20130510
  Receipt Date: 20130820
  Transmission Date: 20140515
  Serious: No
  Sender: FDA-Public Use
  Company Number: US-VERTEX PHARMACEUTICALS INC-2013-005871

PATIENT
  Age: 59 Year
  Sex: Female
  Weight: 74 kg

DRUGS (6)
  1. INCIVEK [Suspect]
     Indication: HEPATITIS C
     Dosage: 750 MG, TID
     Route: 048
     Dates: start: 20130508, end: 20130731
  2. RIBAVIRIN [Suspect]
     Indication: HEPATITIS C
     Dosage: 400 MG, BID
     Route: 048
     Dates: start: 20130508, end: 20130602
  3. RIBAVIRIN [Suspect]
     Dosage: 600 MG AM, 400 MG PM
     Route: 048
     Dates: start: 20130603, end: 20130605
  4. RIBAVIRIN [Suspect]
     Dosage: 400 MG AM, 200 MG PM
     Route: 048
     Dates: start: 20130606
  5. RIBAVIRIN [Suspect]
     Dosage: 400 MG, BID
     Route: 048
  6. PEGASYS [Suspect]
     Indication: HEPATITIS C
     Dosage: 180 ?G, QW
     Route: 058
     Dates: start: 20130508

REACTIONS (19)
  - White blood cell count decreased [Not Recovered/Not Resolved]
  - Dyspnoea [Recovered/Resolved]
  - Headache [Not Recovered/Not Resolved]
  - Stomach mass [Not Recovered/Not Resolved]
  - Laboratory test abnormal [Unknown]
  - Pain in extremity [Not Recovered/Not Resolved]
  - Neck pain [Recovered/Resolved]
  - Musculoskeletal pain [Recovered/Resolved]
  - Back pain [Recovered/Resolved]
  - Muscle disorder [Recovered/Resolved]
  - Gait disturbance [Recovered/Resolved]
  - Sensation of heaviness [Not Recovered/Not Resolved]
  - Abdominal pain lower [Not Recovered/Not Resolved]
  - Weight decreased [Not Recovered/Not Resolved]
  - Decreased appetite [Not Recovered/Not Resolved]
  - Fatigue [Not Recovered/Not Resolved]
  - Anorectal discomfort [Not Recovered/Not Resolved]
  - Anal pruritus [Not Recovered/Not Resolved]
  - Nausea [Not Recovered/Not Resolved]
